FAERS Safety Report 25034738 (Version 2)
Quarter: 2025Q2

REPORT INFORMATION
  Report Type: Spontaneous
  Country: US (occurrence: US)
  Receive Date: 20250304
  Receipt Date: 20250528
  Transmission Date: 20250717
  Serious: No
  Sender: CELLTRION
  Company Number: US-CELLTRION INC.-2025US005639

PATIENT

DRUGS (2)
  1. ADALIMUMAB [Suspect]
     Active Substance: ADALIMUMAB
     Indication: Crohn^s disease
     Route: 058
     Dates: start: 20250219
  2. ADALIMUMAB [Suspect]
     Active Substance: ADALIMUMAB
     Dosage: EVERY WEEK
     Route: 065

REACTIONS (4)
  - Injection site pain [Recovered/Resolved]
  - Product contamination physical [Unknown]
  - Inappropriate schedule of product administration [Unknown]
  - Product dose omission issue [Unknown]

NARRATIVE: CASE EVENT DATE: 20250219
